FAERS Safety Report 13071068 (Version 2)
Quarter: 2017Q1

REPORT INFORMATION
  Report Type: Report from Study
  Country: VE (occurrence: VE)
  Receive Date: 20161229
  Receipt Date: 20170223
  Transmission Date: 20170428
  Serious: Yes (Other)
  Sender: FDA-Public Use
  Company Number: PHHY2016VE154236

PATIENT
  Sex: Female

DRUGS (3)
  1. AROMASIN [Concomitant]
     Active Substance: EXEMESTANE
     Indication: BREAST CANCER METASTATIC
     Dosage: UNK
     Route: 065
     Dates: start: 201307
  2. AFINITOR [Suspect]
     Active Substance: EVEROLIMUS
     Indication: BREAST CANCER
     Dosage: 1 DF, QD
     Route: 048
     Dates: start: 20160912
  3. AFINITOR [Suspect]
     Active Substance: EVEROLIMUS
     Indication: METASTASES TO THE MEDIASTINUM
     Dosage: UNK
     Route: 048
     Dates: end: 201610

REACTIONS (10)
  - Encephalitis [Recovered/Resolved]
  - Feeding disorder [Not Recovered/Not Resolved]
  - Hypertension [Unknown]
  - Dysphagia [Unknown]
  - Oropharyngeal pain [Recovered/Resolved]
  - Aphthous ulcer [Recovering/Resolving]
  - Hypotension [Recovered/Resolved]
  - Toxicity to various agents [Recovered/Resolved]
  - Pain [Not Recovered/Not Resolved]
  - Nausea [Not Recovered/Not Resolved]
